FAERS Safety Report 7609936-1 (Version None)
Quarter: 2011Q3

REPORT INFORMATION
  Report Type: 
  Country: None (occurrence: None)
  Receive Date: 20110714
  Receipt Date: 20101005
  Transmission Date: 20111222
  Serious: No
  Sender: FDA-Public Use
  Company Number: US-TYCO HEALTHCARE/MALLINCKRODT-T201002093

PATIENT
  Age: 48 Year
  Sex: Female

DRUGS (3)
  1. OXYCONTIN [Concomitant]
     Indication: PAIN
     Dosage: 20 MG, Q4-6 HOURS PRN
     Route: 048
  2. OXYCONTIN [Concomitant]
     Dosage: 40 MG AT NIGHT
  3. OXYCODONE HCL [Suspect]
     Indication: PAIN
     Dosage: 5 MG, Q 4 HOURS AS NEEDED
     Route: 048
     Dates: start: 20100913

REACTIONS (1)
  - SLOW RESPONSE TO STIMULI [None]
